FAERS Safety Report 9580772 (Version 2)
Quarter: 2013Q4

REPORT INFORMATION
  Report Type: Spontaneous
  Country: FR (occurrence: FR)
  Receive Date: 20131002
  Receipt Date: 20131007
  Transmission Date: 20140711
  Serious: Yes (Life-Threatening, Hospitalization)
  Sender: FDA-Public Use
  Company Number: FR-SA-2013SA095737

PATIENT
  Age: 61 Year
  Sex: Male
  Weight: 72 kg

DRUGS (6)
  1. FLUDARA [Suspect]
     Indication: WALDENSTROM^S MACROGLOBULINAEMIA
     Route: 048
     Dates: start: 20130304, end: 20130306
  2. FLUDARA [Suspect]
     Indication: WALDENSTROM^S MACROGLOBULINAEMIA
     Route: 048
     Dates: start: 20130404, end: 20130418
  3. MABTHERA [Suspect]
     Indication: WALDENSTROM^S MACROGLOBULINAEMIA
     Route: 042
     Dates: start: 20130416, end: 20130418
  4. ENDOXAN [Concomitant]
     Dates: start: 201303
  5. ENDOXAN [Concomitant]
     Dates: start: 201304
  6. RITUXIMAB [Concomitant]
     Dates: start: 201304

REACTIONS (2)
  - Agranulocytosis [Recovered/Resolved]
  - Anaemia [Recovered/Resolved]
